FAERS Safety Report 5195945-1 (Version None)
Quarter: 2007Q1

REPORT INFORMATION
  Report Type: 
  Country: None (occurrence: None)
  Receive Date: 20070102
  Receipt Date: 20061219
  Transmission Date: 20070707
  Serious: Yes (Hospitalization)
  Sender: FDA-Public Use
  Company Number: US-ELI_LILLY_AND_COMPANY-US200612003642

PATIENT
  Sex: Female

DRUGS (1)
  1. FORTEO [Suspect]
     Dates: start: 20061001

REACTIONS (3)
  - MYOCARDIAL INFARCTION [None]
  - OESOPHAGEAL OBSTRUCTION [None]
  - PNEUMONIA ASPIRATION [None]
